FAERS Safety Report 6387713-X (Version None)
Quarter: 2009Q4

REPORT INFORMATION
  Report Type: 
  Country: None (occurrence: None)
  Receive Date: 20091005
  Receipt Date: 20090930
  Transmission Date: 20100525
  Serious: Yes (Death, Other)
  Sender: FDA-Public Use
  Company Number: PHEH2009US11782

PATIENT
  Sex: Male

DRUGS (2)
  1. EXJADE [Suspect]
     Indication: SICKLE CELL ANAEMIA
     Dosage: 250 MG, TID
     Route: 048
  2. ANTIARRHYTHMICS, CLASS I AND III [Concomitant]
     Dosage: UNK, UNK

REACTIONS (4)
  - ASTHENIA [None]
  - FALL [None]
  - HERNIA [None]
  - SUBDURAL HAEMATOMA [None]
